FAERS Safety Report 9946689 (Version 2)
Quarter: 2014Q1

REPORT INFORMATION
  Report Type: Spontaneous
  Country: US (occurrence: US)
  Receive Date: 20140303
  Receipt Date: 20140307
  Transmission Date: 20141002
  Serious: Yes (Hospitalization, Other)
  Sender: FDA-Public Use
  Company Number: US-TEVA-465765USA

PATIENT
  Age: 75 Year
  Sex: Male

DRUGS (1)
  1. NUVIGIL [Suspect]

REACTIONS (4)
  - Heart valve replacement [Recovered/Resolved]
  - Investigation [Recovered/Resolved]
  - Heart rate increased [Unknown]
  - Atrial fibrillation [Unknown]
